FAERS Safety Report 7319521-7 (Version None)
Quarter: 2011Q1

REPORT INFORMATION
  Report Type: 
  Country: None (occurrence: None)
  Receive Date: 20110228
  Receipt Date: 20100707
  Transmission Date: 20110831
  Serious: No
  Sender: FDA-Public Use
  Company Number: A0857098A

PATIENT
  Sex: Male

DRUGS (3)
  1. LAMICTAL [Suspect]
     Dosage: 200MG TWICE PER DAY
     Route: 048
  2. DILANTIN [Concomitant]
  3. LESCOL [Concomitant]

REACTIONS (25)
  - HEADACHE [None]
  - AFFECTIVE DISORDER [None]
  - STOMATITIS [None]
  - ERYTHEMA [None]
  - PRURITUS [None]
  - CHROMATURIA [None]
  - ANHEDONIA [None]
  - RHINORRHOEA [None]
  - MYALGIA [None]
  - RASH [None]
  - GINGIVAL PAIN [None]
  - BLISTER [None]
  - DIPLOPIA [None]
  - NAUSEA [None]
  - HAEMORRHAGE SUBCUTANEOUS [None]
  - NASAL CONGESTION [None]
  - INSOMNIA [None]
  - DYSURIA [None]
  - GINGIVAL DISORDER [None]
  - DERMATITIS [None]
  - SKIN EXFOLIATION [None]
  - ADVERSE DRUG REACTION [None]
  - CONSTIPATION [None]
  - SWELLING [None]
  - TREMOR [None]
